FAERS Safety Report 9596598 (Version 2)
Quarter: 2013Q4

REPORT INFORMATION
  Report Type: Spontaneous
  Country: AR (occurrence: AR)
  Receive Date: 20131004
  Receipt Date: 20131017
  Transmission Date: 20140711
  Serious: Yes (Hospitalization)
  Sender: FDA-Public Use
  Company Number: AR-PFIZER INC-2013282221

PATIENT
  Age: 60 Year
  Sex: Female

DRUGS (3)
  1. GENOTROPIN [Suspect]
     Indication: GROWTH HORMONE DEFICIENCY
     Dosage: 1.5 MG - 2 MG, 1X/DAY
     Route: 058
     Dates: start: 20130723
  2. LEVOTHYROXINE [Concomitant]
     Dosage: UNK
     Route: 048
  3. HYDROCORTISONE [Concomitant]
     Dosage: UNK

REACTIONS (4)
  - Dehydration [Recovered/Resolved]
  - Disorientation [Recovered/Resolved]
  - Hypotension [Recovered/Resolved]
  - Constipation [Recovering/Resolving]
